FAERS Safety Report 9709784 (Version 3)
Quarter: 2013Q4

REPORT INFORMATION
  Report Type: Spontaneous
  Country: IT (occurrence: IT)
  Receive Date: 20131126
  Receipt Date: 20131219
  Transmission Date: 20140711
  Serious: Yes (Hospitalization)
  Sender: FDA-Public Use
  Company Number: IT-BRISTOL-MYERS SQUIBB COMPANY-19634740

PATIENT
  Age: 83 Year
  Sex: Female

DRUGS (5)
  1. COUMADIN TABS 5 MG [Suspect]
     Indication: ATRIAL FIBRILLATION
     Route: 048
     Dates: start: 20080101, end: 20130904
  2. CLARITHROMYCIN [Concomitant]
  3. METFORMIN HCL [Concomitant]
     Indication: TYPE 2 DIABETES MELLITUS
     Route: 048
  4. SERENASE [Concomitant]
     Dosage: 2 MG/ML
     Route: 048
  5. LASIX [Concomitant]
     Indication: HYPERTENSION
     Dosage: 25 MG TABS
     Route: 048

REACTIONS (3)
  - Melaena [Recovering/Resolving]
  - Anaemia [Recovering/Resolving]
  - Hypocoagulable state [Recovering/Resolving]
